FAERS Safety Report 4695371-5 (Version None)
Quarter: 2005Q2

REPORT INFORMATION
  Report Type: 
  Country: None (occurrence: None)
  Receive Date: 20050617
  Receipt Date: 20050603
  Transmission Date: 20051028
  Serious: Yes (Hospitalization)
  Sender: FDA-Public Use
  Company Number: 11443

PATIENT
  Age: 64 Year
  Sex: Female

DRUGS (6)
  1. DEXAMETHASONE [Suspect]
     Indication: MULTIPLE MYELOMA
     Dosage: IV
     Route: 042
     Dates: start: 20050311, end: 20050314
  2. DOXORUBICIN HCL [Suspect]
     Indication: MULTIPLE MYELOMA
     Dosage: IV
     Route: 042
     Dates: start: 20050311, end: 20050314
  3. VINCRISTINE [Suspect]
     Indication: MULTIPLE MYELOMA
     Dosage: IV
     Route: 042
     Dates: start: 20050311, end: 20050314
  4. CIPROFLOXACIN [Suspect]
     Dosage: IV
     Route: 042
     Dates: start: 20050316, end: 20050317
  5. TAZOBACTAM [Suspect]
     Dosage: IV
     Route: 042
     Dates: start: 20050316, end: 20050317
  6. BORTEZAMIB [Suspect]
     Indication: MULTIPLE MYELOMA
     Dosage: IV
     Route: 042
     Dates: start: 20050315

REACTIONS (1)
  - PANCREATITIS ACUTE [None]
